FAERS Safety Report 4325865-3 (Version None)
Quarter: 2004Q1

REPORT INFORMATION
  Report Type: 
  Country: None (occurrence: None)
  Receive Date: 20040329
  Receipt Date: 20000927
  Transmission Date: 20041129
  Serious: Yes (Other)
  Sender: FDA-Public Use
  Company Number: JP-MERCK-00100390

PATIENT
  Age: 61 Year
  Sex: Male
  Weight: 81 kg

DRUGS (4)
  1. AMLODIPINE BESYLATE [Concomitant]
     Indication: HYPERTENSION
     Route: 065
     Dates: start: 20000506
  2. LISINOPRIL [Concomitant]
     Route: 065
     Dates: start: 20000614
  3. ZOCOR [Suspect]
     Indication: HYPERCHOLESTEROLAEMIA
     Route: 048
     Dates: start: 20000822, end: 20000908
  4. ZOCOR [Suspect]
     Route: 048
     Dates: start: 20000922, end: 20000927

REACTIONS (6)
  - ATRIAL FIBRILLATION [None]
  - BLOOD LACTATE DEHYDROGENASE INCREASED [None]
  - DILATATION ATRIAL [None]
  - INSOMNIA [None]
  - PALPITATIONS [None]
  - TACHYCARDIA [None]
